FAERS Safety Report 7115024-3 (Version None)
Quarter: 2010Q4

REPORT INFORMATION
  Report Type: 
  Country: None (occurrence: None)
  Receive Date: 20101122
  Receipt Date: 20090928
  Transmission Date: 20110411
  Serious: No
  Sender: FDA-Public Use
  Company Number: 2009BI031342

PATIENT
  Age: 51 Year
  Sex: Female

DRUGS (1)
  1. TYSABRI [Suspect]
     Indication: MULTIPLE SCLEROSIS
     Route: 042
     Dates: start: 20090730

REACTIONS (9)
  - ASTHENIA [None]
  - DRUG EFFECT DECREASED [None]
  - FATIGUE [None]
  - FEELING HOT [None]
  - INFUSION SITE EXTRAVASATION [None]
  - INFUSION SITE PAIN [None]
  - INFUSION SITE SWELLING [None]
  - JOINT SWELLING [None]
  - POOR VENOUS ACCESS [None]
